FAERS Safety Report 17898819 (Version 4)
Quarter: 2021Q4

REPORT INFORMATION
  Report Type: Report from Study
  Country: US (occurrence: US)
  Receive Date: 20200615
  Receipt Date: 20211027
  Transmission Date: 20220303
  Serious: Yes (Hospitalization, Other)
  Sender: FDA-Public Use
  Company Number: US-JAZZ-2020-US-007353

PATIENT
  Age: 18 Year
  Sex: Female

DRUGS (9)
  1. XYREM [Suspect]
     Active Substance: SODIUM OXYBATE
     Indication: Narcolepsy
     Dosage: 1 GRAM, BID
     Route: 048
     Dates: start: 201801, end: 201802
  2. XYREM [Suspect]
     Active Substance: SODIUM OXYBATE
     Indication: Cataplexy
     Dosage: DOSE ADJUSTMENT
     Route: 048
     Dates: start: 201802, end: 201808
  3. XYREM [Suspect]
     Active Substance: SODIUM OXYBATE
     Dosage: 2.75 GRAM, BID
     Route: 048
     Dates: start: 201808
  4. OXCARBAZEPINE [Concomitant]
     Active Substance: OXCARBAZEPINE
     Indication: Product used for unknown indication
  5. TUSSIN [BUTAMIRATE CITRATE] [Concomitant]
     Indication: Product used for unknown indication
  6. PROZAC [Concomitant]
     Active Substance: FLUOXETINE HYDROCHLORIDE
     Indication: Product used for unknown indication
  7. CALCIUM CITRATE [Concomitant]
     Active Substance: CALCIUM CITRATE
     Indication: Product used for unknown indication
  8. JUNEL FE 1/20 [Concomitant]
     Active Substance: ETHINYL ESTRADIOL\NORETHINDRONE ACETATE
     Indication: Product used for unknown indication
  9. RANITIDINE [Concomitant]
     Active Substance: RANITIDINE
     Indication: Product used for unknown indication

REACTIONS (2)
  - Intentional self-injury [Unknown]
  - Depression [Unknown]

NARRATIVE: CASE EVENT DATE: 20200416
